FAERS Safety Report 5581493-3 (Version None)
Quarter: 2007Q4

REPORT INFORMATION
  Report Type: 
  Country: None (occurrence: None)
  Receive Date: 20071231
  Receipt Date: 20071217
  Transmission Date: 20080405
  Serious: Yes (Hospitalization)
  Sender: FDA-Public Use
  Company Number: 2007-05842

PATIENT
  Age: 78 Year
  Sex: Female

DRUGS (8)
  1. FORTAMET [Suspect]
     Indication: TYPE 2 DIABETES MELLITUS
     Dosage: 1500 MG, BID
     Dates: start: 20070101
  2. GLYBURIDE [Concomitant]
  3. ROFECOXIB [Concomitant]
  4. FUROSEMIDE [Concomitant]
  5. LEVOTHYROXINE SODIUM [Concomitant]
  6. PREDNISONE TAB [Concomitant]
  7. AZATHIOPRINE [Concomitant]
  8. PROPRANOLOL [Concomitant]

REACTIONS (5)
  - ANION GAP INCREASED [None]
  - DIALYSIS [None]
  - LACTIC ACIDOSIS [None]
  - METABOLIC ACIDOSIS [None]
  - RENAL INJURY [None]
